FAERS Safety Report 22061308 (Version 4)
Quarter: 2023Q2

REPORT INFORMATION
  Report Type: Report from Study
  Country: US (occurrence: US)
  Receive Date: 20230304
  Receipt Date: 20230415
  Transmission Date: 20230722
  Serious: Yes (Hospitalization, Other)
  Sender: FDA-Public Use
  Company Number: US-AUROBINDO-AUR-APL-2023-004434

PATIENT
  Age: 51 Year
  Sex: Female
  Weight: 50.3 kg

DRUGS (27)
  1. PRALATREXATE [Suspect]
     Active Substance: PRALATREXATE
     Indication: Product used for unknown indication
     Dosage: 48 MILLIGRAM, EVERY WEEK
     Route: 042
     Dates: start: 20230109
  2. PRALATREXATE [Suspect]
     Active Substance: PRALATREXATE
     Dosage: 32 MILLIGRAM, EVERY WEEK
     Route: 042
     Dates: start: 20230208, end: 20230215
  3. TYLENOL [Suspect]
     Active Substance: ACETAMINOPHEN
     Indication: Product used for unknown indication
     Dosage: 650 MILLIGRAM (Q4H PRN)
     Route: 048
  4. DEXTROSE [Suspect]
     Active Substance: DEXTROSE\DEXTROSE MONOHYDRATE
     Indication: Product used for unknown indication
     Dosage: 50 MILLILITER (Q15 MIN PRN)
     Route: 042
  5. DEXTROSE [Suspect]
     Active Substance: DEXTROSE\DEXTROSE MONOHYDRATE
     Indication: Product used for unknown indication
     Dosage: 250 MILLILITER (Q15 MIN PRN)
     Route: 042
  6. GLUCAGON [Suspect]
     Active Substance: GLUCAGON
     Indication: Product used for unknown indication
     Dosage: 1 MILLIGRAM, DAILY (DAILY PRN)
     Route: 030
  7. PEPCID [Suspect]
     Active Substance: FAMOTIDINE
     Indication: Product used for unknown indication
     Dosage: 20 MILLIGRAM, TWO TIMES A DAY
     Route: 048
     Dates: start: 20230127
  8. GLUTOSE [Suspect]
     Active Substance: DEXTROSE
     Indication: Product used for unknown indication
     Dosage: 15 GRAM (015 MIN PRN)
     Route: 048
  9. NORCO [Suspect]
     Active Substance: ACETAMINOPHEN\HYDROCODONE BITARTRATE
     Indication: Product used for unknown indication
     Dosage: 1 DOSAGE FORM
     Route: 048
     Dates: start: 20230126
  10. HUMALOG [Suspect]
     Active Substance: INSULIN LISPRO
     Indication: Product used for unknown indication
     Dosage: UNK (WITH MEALS + NIGHTLY) 2-12 UNITS (MEDIUM)
     Route: 058
     Dates: start: 20230127
  11. ZOFRAN [Suspect]
     Active Substance: ONDANSETRON HYDROCHLORIDE
     Indication: Product used for unknown indication
     Dosage: 4 MILLIGRAM
     Route: 042
  12. PERCOCET [Suspect]
     Active Substance: ACETAMINOPHEN\OXYCODONE HYDROCHLORIDE
     Indication: Pain
     Dosage: 1 DOSAGE FORM, 3 TIMES A DAY (EVERY 8 HOURS AS NEEDED)
     Route: 048
     Dates: start: 20230127
  13. ZOSYN [Suspect]
     Active Substance: PIPERACILLIN SODIUM\TAZOBACTAM SODIUM
     Dosage: 3.375 GRAM (Q8H)
     Route: 042
     Dates: start: 20230126
  14. ZOSYN [Suspect]
     Active Substance: PIPERACILLIN SODIUM\TAZOBACTAM SODIUM
     Dosage: 25 MILLILITER, EVERY HOUR
     Route: 042
     Dates: start: 20230126
  15. ZOSYN [Suspect]
     Active Substance: PIPERACILLIN SODIUM\TAZOBACTAM SODIUM
     Dosage: 3.375 GRAM (Q8H)
     Route: 042
     Dates: start: 20230127
  16. ZOSYN [Suspect]
     Active Substance: PIPERACILLIN SODIUM\TAZOBACTAM SODIUM
     Dosage: 25 MILLILITER, EVERY HOUR
     Route: 042
     Dates: start: 20230127
  17. SODIUM CHLORIDE [Suspect]
     Active Substance: SODIUM CHLORIDE
     Indication: Product used for unknown indication
     Dosage: 3 MILLILITER (Q8H PRN)
     Route: 042
  18. GRANIX [Suspect]
     Active Substance: TBO-FILGRASTIM
     Indication: Product used for unknown indication
     Dosage: 300 MICROGRAM, ONCE A DAY
     Route: 058
  19. GRANIX [Suspect]
     Active Substance: TBO-FILGRASTIM
     Dosage: 480 MICROGRAM, ONCE A DAY
     Route: 058
  20. ATAZANAVIR [Concomitant]
     Active Substance: ATAZANAVIR
     Indication: Product used for unknown indication
     Dosage: UNK
     Route: 065
     Dates: start: 20221107
  21. BACTRIM [Concomitant]
     Active Substance: SULFAMETHOXAZOLE\TRIMETHOPRIM
     Indication: Urinary tract infection
     Dosage: 1 DOSAGE FORM, TWO TIMES A DAY
     Route: 048
  22. BELINOSTAT [Concomitant]
     Active Substance: BELINOSTAT
     Indication: Product used for unknown indication
     Dosage: UNK
     Route: 065
     Dates: start: 20221107
  23. CASODEX [Concomitant]
     Active Substance: BICALUTAMIDE
     Indication: Product used for unknown indication
     Dosage: UNK
     Route: 065
     Dates: start: 202201
  24. CARBOPLATIN\PACLITAXEL [Concomitant]
     Active Substance: CARBOPLATIN\PACLITAXEL
     Indication: Product used for unknown indication
     Dosage: UNK
     Route: 065
     Dates: start: 20220215
  25. INSULIN NOS [Concomitant]
     Active Substance: INSULIN NOS
     Indication: Glycosylated haemoglobin
     Dosage: UNK, FOUR TIMES/DAY (0.02-0.12 ML (2-12 UNITS TOTAL) UNDER THE SKIN 4 (FOUR) TIMES A DAY WITH MEALS
     Route: 058
  26. MEGACE [Concomitant]
     Active Substance: MEGESTROL ACETATE
     Indication: Product used for unknown indication
     Dosage: 400 MILLIGRAM, TWO TIMES A DAY
     Route: 048
     Dates: start: 20230126
  27. METFORMIN [Concomitant]
     Active Substance: METFORMIN HYDROCHLORIDE
     Indication: Glycosylated haemoglobin
     Dosage: 1000 MILLIGRAM, TWO TIMES A DAY (DAILY WITH MEALS)
     Route: 048

REACTIONS (5)
  - Anaemia [Not Recovered/Not Resolved]
  - Mucosal inflammation [Recovered/Resolved]
  - Oral pain [Unknown]
  - Lip swelling [Unknown]
  - Pancytopenia [Unknown]

NARRATIVE: CASE EVENT DATE: 20230124
